FAERS Safety Report 11095346 (Version 1)
Quarter: 2015Q2

REPORT INFORMATION
  Report Type: Spontaneous
  Country: US (occurrence: US)
  Receive Date: 20150506
  Receipt Date: 20150506
  Transmission Date: 20150821
  Serious: No
  Sender: FDA-Public Use
  Company Number: US-SA-2015SA024020

PATIENT
  Age: 55 Year
  Sex: Male

DRUGS (3)
  1. SOLOSTAR [Concomitant]
     Active Substance: DEVICE
  2. APIDRA SOLOSTAR [Suspect]
     Active Substance: INSULIN GLULISINE
     Dosage: DOSE: SLIDING SCALE
     Route: 065
     Dates: start: 2002
  3. APIDRA SOLOSTAR [Suspect]
     Active Substance: INSULIN GLULISINE
     Dosage: DOSE: SLIDING SCALE
     Route: 065
     Dates: start: 2002

REACTIONS (1)
  - Blood glucose increased [Unknown]
